FAERS Safety Report 8591179-9 (Version None)
Quarter: 2012Q3

REPORT INFORMATION
  Report Type: 
  Country: None (occurrence: None)
  Receive Date: 20120813
  Receipt Date: 20120808
  Transmission Date: 20120928
  Serious: Yes (Hospitalization)
  Sender: FDA-Public Use
  Company Number: US-GILEAD-2012-0056235

PATIENT
  Sex: Female

DRUGS (3)
  1. LETAIRIS [Suspect]
     Dosage: 5 MG, UNK
     Route: 048
     Dates: start: 20110727
  2. FLOLAN [Concomitant]
  3. LETAIRIS [Suspect]
     Indication: PRODUCT USED FOR UNKNOWN INDICATION
     Dosage: 10 UNK, UNK
     Route: 048
     Dates: start: 20120329

REACTIONS (1)
  - DEVICE DISLOCATION [None]
